FAERS Safety Report 5999980-2 (Version None)
Quarter: 2008Q4

REPORT INFORMATION
  Report Type: 
  Country: None (occurrence: None)
  Receive Date: 20081211
  Receipt Date: 20080716
  Transmission Date: 20090506
  Serious: No
  Sender: FDA-Public Use
  Company Number: US024151

PATIENT
  Sex: Female

DRUGS (1)
  1. TREANDA [Suspect]
     Indication: LYMPHOMA
     Dosage: 100 MG VIAL QWKLY INTRAVENOUS
     Route: 042

REACTIONS (2)
  - NAUSEA [None]
  - VOMITING [None]
